FAERS Safety Report 7363719-9 (Version None)
Quarter: 2011Q1

REPORT INFORMATION
  Report Type: 
  Country: None (occurrence: None)
  Receive Date: 20110225
  Receipt Date: 20101103
  Transmission Date: 20110831
  Serious: No
  Sender: FDA-Public Use
  Company Number: 317759

PATIENT
  Age: 72 Year
  Sex: Female

DRUGS (3)
  1. QUINAPRIL HCL [Concomitant]
  2. VICTOZA [Suspect]
     Indication: TYPE 1 DIABETES MELLITUS
     Dosage: 1.2 MG, QD, SUBCUTANEOUS
     Route: 058
     Dates: start: 20101001
  3. LANTUS [Concomitant]

REACTIONS (4)
  - NAUSEA [None]
  - BLOOD PRESSURE INCREASED [None]
  - DIZZINESS [None]
  - DIARRHOEA [None]
